FAERS Safety Report 16205915 (Version 3)
Quarter: 2019Q4

REPORT INFORMATION
  Report Type: Spontaneous
  Country: GB (occurrence: GB)
  Receive Date: 20190417
  Receipt Date: 20191202
  Transmission Date: 20200122
  Serious: Yes (Hospitalization, Other)
  Sender: FDA-Public Use
  Company Number: GB-AUROBINDO-AUR-APL-2019-019464

PATIENT
  Age: 35 Year
  Sex: Female

DRUGS (7)
  1. IBUPROFEN. [Suspect]
     Active Substance: IBUPROFEN
     Indication: BACK PAIN
     Dosage: 6 GRAM, ONCE A DAY
     Route: 065
  2. IBUPROFEN. [Suspect]
     Active Substance: IBUPROFEN
     Indication: ANALGESIC THERAPY
     Dosage: 6 GRAM, ONCE A DAY (UP TO 6 G PER DAY)
     Route: 065
  3. RENNIE PEPPERMINT [Suspect]
     Active Substance: CALCIUM CARBONATE\MAGNESIUM CARBONATE
     Indication: GASTROOESOPHAGEAL REFLUX DISEASE
     Dosage: 72 DOSAGE FORM, ONCE A DAY (UP TO 72 TABLETS)
     Route: 048
  4. GAVISCON [Suspect]
     Active Substance: ALUMINUM HYDROXIDE\MAGNESIUM CARBONATE
     Indication: PRODUCT USED FOR UNKNOWN INDICATION
     Dosage: 600 MILLILITER PER WEEK FOR 8 MONTHS
     Route: 065
  5. RENNIE PEPPERMINT [Suspect]
     Active Substance: CALCIUM CARBONATE\MAGNESIUM CARBONATE
     Indication: ANTACID THERAPY
     Dosage: UP TO 72 TABLETS
     Route: 048
     Dates: start: 201702, end: 201710
  6. GAVISCON ORIGINAL ANTISEED RELIEF [Concomitant]
     Active Substance: CALCIUM CARBONATE\SODIUM ALGINATE\SODIUM BICARBONATE
     Indication: GASTROOESOPHAGEAL REFLUX DISEASE
     Dosage: 600 MILLILITER ONCE IN A WEEK
     Route: 048
     Dates: start: 201702, end: 201710
  7. PARACETAMOL [Suspect]
     Active Substance: ACETAMINOPHEN
     Indication: BACK PAIN
     Dosage: 7.5 GRAM, ONCE A DAY (UPTO 7.5 G OF PER DAY)
     Route: 065

REACTIONS (8)
  - Self-medication [Recovered/Resolved]
  - Hepatic function abnormal [Unknown]
  - Coagulopathy [Recovering/Resolving]
  - Accidental overdose [Unknown]
  - Gastric ulcer [Unknown]
  - Drug abuse [Recovered/Resolved]
  - Overdose [Recovered/Resolved]
  - Liver function test abnormal [Recovering/Resolving]

NARRATIVE: CASE EVENT DATE: 2017
